FAERS Safety Report 11860886 (Version 2)
Quarter: 2016Q1

REPORT INFORMATION
  Report Type: Spontaneous
  Country: BE (occurrence: BE)
  Receive Date: 20151222
  Receipt Date: 20160129
  Transmission Date: 20160526
  Serious: Yes (Other)
  Sender: FDA-Public Use
  Company Number: BE-TAKEDA-2015TUS018175

PATIENT
  Age: 44 Year
  Sex: Male
  Weight: 78 kg

DRUGS (3)
  1. ENTYVIO [Suspect]
     Active Substance: VEDOLIZUMAB
     Indication: PRODUCT USED FOR UNKNOWN INDICATION
     Dosage: UNK
     Route: 065
  2. PANTOMED                           /00178901/ [Concomitant]
     Indication: DYSPEPSIA
     Dosage: UNK, QD
     Route: 048
     Dates: start: 2014
  3. URSOFALK [Concomitant]
     Active Substance: URSODIOL
     Indication: BILIARY CIRRHOSIS PRIMARY
     Dosage: UNK, TID
     Route: 048
     Dates: start: 201403

REACTIONS (2)
  - JC virus test positive [Unknown]
  - Vision blurred [Recovered/Resolved]
